FAERS Safety Report 17219425 (Version 4)
Quarter: 2020Q1

REPORT INFORMATION
  Report Type: Spontaneous
  Country: PL (occurrence: PL)
  Receive Date: 20191231
  Receipt Date: 20200128
  Transmission Date: 20200409
  Serious: Yes (Life-Threatening, Hospitalization, Other)
  Sender: FDA-Public Use
  Company Number: PL-SA-2019SA360777

PATIENT
  Age: 38 Year
  Sex: Female

DRUGS (12)
  1. MEROPENEM. [Concomitant]
     Active Substance: MEROPENEM
     Dosage: 1 G, TID
     Route: 042
  2. VANCOMYCIN [Concomitant]
     Active Substance: VANCOMYCIN
     Dosage: 1 G, TID
     Route: 042
  3. FENTANYL. [Concomitant]
     Active Substance: FENTANYL
  4. FLUCONAZOLE. [Concomitant]
     Active Substance: FLUCONAZOLE
     Dosage: 200 MG, QD
  5. CEFUROXIME. [Concomitant]
     Active Substance: CEFUROXIME
     Indication: ABSCESS NECK
     Dosage: UNK, UNK
     Route: 065
  6. NYSTATIN. [Concomitant]
     Active Substance: NYSTATIN
     Dosage: UNK UNK, QD
     Route: 042
  7. CLOPIDOGREL BISULFATE. [Suspect]
     Active Substance: CLOPIDOGREL BISULFATE
     Indication: ANTICOAGULANT THERAPY
     Dosage: UNK UNK, UNK
     Route: 065
  8. COLISTIMETHATE SODIUM. [Concomitant]
     Active Substance: COLISTIMETHATE SODIUM
  9. PROPOFOL. [Concomitant]
     Active Substance: PROPOFOL
  10. ACETYLSALICYLIC ACID [Suspect]
     Active Substance: ASPIRIN
     Indication: ANTICOAGULANT THERAPY
     Route: 065
  11. GENTAMICIN. [Concomitant]
     Active Substance: GENTAMICIN
     Dosage: UNK UNK, QD
     Route: 042
  12. CLINDAMYCIN. [Concomitant]
     Active Substance: CLINDAMYCIN
     Dosage: 600 MG, TID
     Route: 042

REACTIONS (18)
  - Upper airway obstruction [Recovered/Resolved]
  - Acute respiratory failure [Recovered/Resolved]
  - Gastric ulcer [Recovered/Resolved]
  - Haematemesis [Recovered/Resolved]
  - Abscess neck [Recovered/Resolved]
  - Cellulitis [Unknown]
  - Drug interaction [Unknown]
  - Shock haemorrhagic [Recovered/Resolved]
  - Upper gastrointestinal haemorrhage [Recovered/Resolved]
  - Sepsis syndrome [Unknown]
  - Mobility decreased [Recovered/Resolved]
  - Syncope [Recovered/Resolved]
  - Septic shock [Recovered/Resolved]
  - Loss of consciousness [Recovered/Resolved]
  - Melaena [Recovered/Resolved]
  - Multiple organ dysfunction syndrome [Recovered/Resolved]
  - Anaemia [Recovered/Resolved]
  - Asthenia [Recovered/Resolved]
